FAERS Safety Report 25730395 (Version 3)
Quarter: 2025Q3

REPORT INFORMATION
  Report Type: Spontaneous
  Country: EU (occurrence: EU)
  Receive Date: 20250827
  Receipt Date: 20250902
  Transmission Date: 20251021
  Serious: Yes (Hospitalization, Other)
  Sender: SUNOVION
  Company Number: EU-SMPA-2025SPA010789

PATIENT
  Age: 23 Year
  Sex: Female

DRUGS (5)
  1. LURASIDONE HYDROCHLORIDE [Suspect]
     Active Substance: LURASIDONE HYDROCHLORIDE
     Indication: Schizophrenia
     Route: 048
  2. LURASIDONE HYDROCHLORIDE [Suspect]
     Active Substance: LURASIDONE HYDROCHLORIDE
     Route: 048
  3. LURASIDONE HYDROCHLORIDE [Suspect]
     Active Substance: LURASIDONE HYDROCHLORIDE
     Route: 048
  4. BIPERIDEN HYDROCHLORIDE [Suspect]
     Active Substance: BIPERIDEN HYDROCHLORIDE
     Indication: Schizophrenia
  5. BIPERIDEN HYDROCHLORIDE [Suspect]
     Active Substance: BIPERIDEN HYDROCHLORIDE

REACTIONS (4)
  - Psychotic disorder [Recovering/Resolving]
  - Mental impairment [Recovering/Resolving]
  - Extrapyramidal disorder [Recovering/Resolving]
  - Drug ineffective [Unknown]

NARRATIVE: CASE EVENT DATE: 20220901
